FAERS Safety Report 21449666 (Version 1)
Quarter: 2022Q4

REPORT INFORMATION
  Report Type: Spontaneous
  Country: US (occurrence: US)
  Receive Date: 20221013
  Receipt Date: 20221013
  Transmission Date: 20230113
  Serious: No
  Sender: FDA-Public Use
  Company Number: US-ABBVIE-4153278

PATIENT

DRUGS (1)
  1. RITONAVIR [Suspect]
     Active Substance: RITONAVIR
     Indication: Product used for unknown indication
     Route: 048

REACTIONS (6)
  - Sneezing [Unknown]
  - Nasal congestion [Unknown]
  - Malaise [Unknown]
  - Body temperature abnormal [Unknown]
  - SARS-CoV-2 test positive [Unknown]
  - Asthenia [Unknown]
